FAERS Safety Report 13995885 (Version 1)
Quarter: 2017Q3

REPORT INFORMATION
  Report Type: Report from Study
  Country: US (occurrence: US)
  Receive Date: 20170921
  Receipt Date: 20170921
  Transmission Date: 20171128
  Serious: Yes (Other)
  Sender: FDA-Public Use
  Company Number: US-PFIZER INC-2017279706

PATIENT
  Age: 72 Year
  Sex: Female

DRUGS (4)
  1. IBRANCE [Suspect]
     Active Substance: PALBOCICLIB
     Dosage: 100 MG, CYCLIC (DAILY X 21DAYS THEN 7DAYS REST)
     Route: 048
     Dates: start: 20170626, end: 20170711
  2. IBRANCE [Suspect]
     Active Substance: PALBOCICLIB
     Indication: BREAST CANCER FEMALE
     Dosage: 125 MG, DAILY
     Route: 048
     Dates: start: 20170201, end: 20170301
  3. IBRANCE [Suspect]
     Active Substance: PALBOCICLIB
     Dosage: 75 MG, CYCLIC (W/FOOD FOR 21 DAYS THEN 7 DAYS OFF)
     Route: 048
     Dates: start: 20170216, end: 20170306
  4. FASLODEX [Concomitant]
     Active Substance: FULVESTRANT
     Indication: BREAST CANCER FEMALE
     Dosage: UNK UNK, DAILY(Q 28 DAYS)
     Dates: start: 20170822

REACTIONS (4)
  - Leukopenia [Recovered/Resolved]
  - Fatigue [Unknown]
  - Thrombocytopenia [Recovered/Resolved]
  - Pancytopenia [Recovered/Resolved]

NARRATIVE: CASE EVENT DATE: 2017
